FAERS Safety Report 7276314-7 (Version None)
Quarter: 2011Q1

REPORT INFORMATION
  Report Type: 
  Country: None (occurrence: None)
  Receive Date: 20110204
  Receipt Date: 20110125
  Transmission Date: 20110831
  Serious: Yes (Other)
  Sender: FDA-Public Use
  Company Number: GR-B.I. PHARMACEUTICALS,INC./RIDGEFIELD-2011-DE-00893VA

PATIENT
  Age: 36 Year
  Sex: Female

DRUGS (10)
  1. CELEBREX [Suspect]
     Indication: INTERVERTEBRAL DISC PROTRUSION
     Dates: start: 20100413, end: 20100423
  2. CELESTONE SOLUSPAN [Suspect]
     Indication: INTERVERTEBRAL DISC PROTRUSION
     Dates: start: 20100413, end: 20100423
  3. NORGESIC [Suspect]
     Indication: INTERVERTEBRAL DISC PROTRUSION
     Route: 030
     Dates: start: 20100409, end: 20100411
  4. GABITON [Suspect]
     Indication: INTERVERTEBRAL DISC PROTRUSION
     Dates: start: 20100420, end: 20100425
  5. DYNASTAT [Suspect]
     Indication: INTERVERTEBRAL DISC PROTRUSION
     Dates: start: 20100413, end: 20100423
  6. LOXITAN [Suspect]
     Indication: INTERVERTEBRAL DISC PROTRUSION
     Dosage: 15 MG
     Route: 048
     Dates: start: 20100410, end: 20100410
  7. PRILOSEC [Suspect]
     Indication: PROPHYLAXIS AGAINST GASTROINTESTINAL ULCER
     Dates: start: 20100409, end: 20100419
  8. ROXITROL [Suspect]
     Indication: PROPHYLAXIS AGAINST GASTROINTESTINAL ULCER
     Dates: start: 20100420, end: 20100425
  9. APOTEL PLUS [Suspect]
     Indication: INTERVERTEBRAL DISC PROTRUSION
     Dates: start: 20100413, end: 20100423
  10. FELDENE [Suspect]
     Indication: INTERVERTEBRAL DISC PROTRUSION
     Dates: start: 20100420, end: 20100425

REACTIONS (1)
  - ABORTION EARLY [None]
